FAERS Safety Report 5297261-6 (Version None)
Quarter: 2007Q2

REPORT INFORMATION
  Report Type: 
  Country: None (occurrence: None)
  Receive Date: 20070416
  Receipt Date: 20070406
  Transmission Date: 20071010
  Serious: Yes (Other)
  Sender: FDA-Public Use
  Company Number: US-JNJFOC-20070402044

PATIENT
  Sex: Female
  Weight: 65.77 kg

DRUGS (12)
  1. FENTANYL TRANSDERMAL SYSTEM [Suspect]
     Indication: ARTHRALGIA
  2. FENTANYL TRANSDERMAL SYSTEM [Suspect]
     Indication: BACK PAIN
  3. INDERAL [Concomitant]
     Indication: TREMOR
     Route: 048
  4. KLONOPIN [Concomitant]
     Indication: ANXIETY
     Route: 048
  5. NEURONTIN [Concomitant]
     Indication: NERVOUSNESS
     Route: 048
  6. EFFEXOR XR [Concomitant]
     Indication: DEPRESSION
     Route: 048
  7. AVALIDE [Concomitant]
     Indication: HYPERTENSION
     Route: 048
  8. CELEBREX [Concomitant]
     Route: 048
  9. LIPITOR [Concomitant]
     Indication: BLOOD CHOLESTEROL INCREASED
     Route: 048
  10. ZYRTEC [Concomitant]
     Route: 048
  11. HYDROCODENE [Concomitant]
     Indication: BREAKTHROUGH PAIN
     Route: 048
  12. DEPO-MEDROL [Concomitant]
     Indication: ARTHRALGIA
     Route: 030

REACTIONS (3)
  - DRUG INEFFECTIVE [None]
  - PAIN [None]
  - SPINAL NERVE STIMULATOR IMPLANTATION [None]
